FAERS Safety Report 5425175-7 (Version None)
Quarter: 2007Q3

REPORT INFORMATION
  Report Type: 
  Country: None (occurrence: None)
  Receive Date: 20070824
  Receipt Date: 20070813
  Transmission Date: 20080115
  Serious: Yes (Other)
  Sender: FDA-Public Use
  Company Number: FR-ASTRAZENECA-2007CG01061

PATIENT
  Age: 814 Month
  Sex: Male
  Weight: 73 kg

DRUGS (10)
  1. NEXIUM [Suspect]
     Indication: PROPHYLAXIS AGAINST GASTROINTESTINAL ULCER
     Route: 048
     Dates: start: 20070301, end: 20070701
  2. EFFEXOR [Concomitant]
  3. COVERSYL [Concomitant]
  4. KARDEGIC [Concomitant]
     Dates: start: 20070301
  5. TAHOR [Concomitant]
  6. ATARAX [Concomitant]
  7. DESLORATADINE [Concomitant]
  8. SERETIDE [Concomitant]
  9. TAVANIC [Concomitant]
  10. FURADANTIN [Concomitant]

REACTIONS (2)
  - BREAST PAIN [None]
  - GYNAECOMASTIA [None]
